FAERS Safety Report 5410905-0 (Version None)
Quarter: 2007Q3

REPORT INFORMATION
  Report Type: 
  Country: None (occurrence: None)
  Receive Date: 20070810
  Receipt Date: 20070724
  Transmission Date: 20080115
  Serious: Yes (Hospitalization)
  Sender: FDA-Public Use
  Company Number: DE-ASTRAZENECA-2007SE04303

PATIENT
  Age: 63 Year
  Sex: Female

DRUGS (1)
  1. BLOPRESS PLUS [Suspect]
     Indication: DRUG USE FOR UNKNOWN INDICATION
     Dosage: CANDESARTAN CILEXETIL 16 MG/HYDROCHLOROTHIAZIDE 12.5 MG
     Route: 048

REACTIONS (2)
  - MUSCULAR WEAKNESS [None]
  - MYALGIA [None]
